FAERS Safety Report 12231590 (Version 1)
Quarter: 2016Q2

REPORT INFORMATION
  Report Type: Report from Study
  Country: CZ (occurrence: CZ)
  Receive Date: 20160401
  Receipt Date: 20160401
  Transmission Date: 20160815
  Serious: Yes (Other)
  Sender: FDA-Public Use
  Company Number: CZ-BAYER-2016-051214

PATIENT
  Age: 41 Year
  Sex: Female
  Weight: 68 kg

DRUGS (1)
  1. MIRENA [Suspect]
     Active Substance: LEVONORGESTREL
     Indication: CONTRACEPTION
     Dosage: 20 MCG/24HR, CONT
     Route: 015
     Dates: start: 20150910, end: 20160216

REACTIONS (14)
  - Post procedural haemorrhage [Recovered/Resolved]
  - Device expulsion [Recovered/Resolved]
  - Abdominal pain lower [None]
  - Device expulsion [Recovered/Resolved]
  - Pruritus genital [None]
  - Enterococcal infection [None]
  - Escherichia infection [None]
  - Abdominal pain [None]
  - Multiple use of single-use product [None]
  - Vaginal haemorrhage [Recovered/Resolved]
  - Vaginitis bacterial [None]
  - Klebsiella infection [None]
  - Genital burning sensation [None]
  - Vaginal discharge [None]

NARRATIVE: CASE EVENT DATE: 201509
